FAERS Safety Report 7598345-X (Version None)
Quarter: 2011Q3

REPORT INFORMATION
  Report Type: 
  Country: None (occurrence: None)
  Receive Date: 20110708
  Receipt Date: 20110628
  Transmission Date: 20111222
  Serious: Yes (Hospitalization, Other)
  Sender: FDA-Public Use
  Company Number: PHHY2011CH58766

PATIENT
  Age: 20 Month
  Sex: Male

DRUGS (1)
  1. GILENYA [Suspect]
     Dosage: SWALLOWED 6 CAPSUES

REACTIONS (1)
  - ACCIDENTAL OVERDOSE [None]
